FAERS Safety Report 19380745 (Version 1)
Quarter: 2021Q2

REPORT INFORMATION
  Report Type: Spontaneous
  Country: AT (occurrence: AT)
  Receive Date: 20210607
  Receipt Date: 20210607
  Transmission Date: 20210717
  Serious: Yes (Other)
  Sender: FDA-Public Use
  Company Number: NVSC2021AT119639

PATIENT
  Age: 51 Year
  Sex: Female

DRUGS (5)
  1. GAZYVARO [Suspect]
     Active Substance: OBINUTUZUMAB
     Indication: STEM CELL TRANSPLANT
     Dosage: UNK (MAINTAINED AT A FREQUENCY OF EVERY 2 MONTHS)
     Route: 065
     Dates: start: 20200221
  2. IFOSFAMIDE. [Suspect]
     Active Substance: IFOSFAMIDE
     Indication: FOLLICULAR LYMPHOMA
     Dosage: UNK
     Route: 065
  3. ETOPOSIDE. [Suspect]
     Active Substance: ETOPOSIDE
     Indication: FOLLICULAR LYMPHOMA
     Dosage: UNK
     Route: 065
  4. CARBOPLATIN. [Suspect]
     Active Substance: CARBOPLATIN
     Indication: FOLLICULAR LYMPHOMA
     Dosage: UNK
     Route: 065
  5. RITUXIMAB. [Suspect]
     Active Substance: RITUXIMAB
     Indication: FOLLICULAR LYMPHOMA
     Dosage: UNK
     Route: 065

REACTIONS (9)
  - Tinnitus [Unknown]
  - Thrombocytopenia [Recovered/Resolved]
  - Febrile neutropenia [Unknown]
  - Anaemia [Recovered/Resolved]
  - Haematuria [Unknown]
  - Neutropenia [Recovered/Resolved]
  - Urinary tract obstruction [Unknown]
  - Off label use [Unknown]
  - Abdominal pain lower [Unknown]
